FAERS Safety Report 9941665 (Version 2)
Quarter: 2014Q1

REPORT INFORMATION
  Report Type: Report from Study
  Country: US (occurrence: US)
  Receive Date: 20140303
  Receipt Date: 20140303
  Transmission Date: 20141002
  Serious: No
  Sender: FDA-Public Use
  Company Number: US-ABBVIE-12P-163-1013486-00

PATIENT
  Age: 69 Year
  Sex: Female

DRUGS (1)
  1. HUMIRA [Suspect]
     Indication: COLITIS ULCERATIVE
     Route: 058
     Dates: start: 201207

REACTIONS (5)
  - Cough [Unknown]
  - Nasopharyngitis [Unknown]
  - Sinus operation [Unknown]
  - Sinusitis [Recovered/Resolved]
  - Colitis ulcerative [Recovering/Resolving]
